FAERS Safety Report 15669855 (Version 2)
Quarter: 2019Q4

REPORT INFORMATION
  Report Type: Report from Study
  Country: KR (occurrence: KR)
  Receive Date: 20181129
  Receipt Date: 20191127
  Transmission Date: 20200122
  Serious: Yes (Congenital Anomaly)
  Sender: FDA-Public Use
  Company Number: KR-TEVA-2018-KR-980128

PATIENT
  Weight: 3.24 kg

DRUGS (1)
  1. LETROZOLE. [Suspect]
     Active Substance: LETROZOLE
     Indication: INFERTILITY
     Dosage: 2.5-5MG EVERY 5 DAYS
     Route: 064

REACTIONS (5)
  - Product use in unapproved indication [Unknown]
  - Live birth [Unknown]
  - Congenital hydronephrosis [Unknown]
  - Off label use [Unknown]
  - Foetal exposure during pregnancy [Unknown]
